FAERS Safety Report 20678810 (Version 11)
Quarter: 2022Q4

REPORT INFORMATION
  Report Type: Report from Study
  Country: US (occurrence: None)
  Receive Date: 20220406
  Receipt Date: 20221016
  Transmission Date: 20230113
  Serious: Yes (Hospitalization)
  Sender: FDA-Public Use
  Company Number: US-ROCHE-3061741

PATIENT
  Age: 61 Year
  Sex: Male
  Weight: 86.5 kg

DRUGS (40)
  1. ATEZOLIZUMAB [Suspect]
     Active Substance: ATEZOLIZUMAB
     Indication: Skin cancer
     Dosage: TIME OF INFUSION 18:44-19:50
     Route: 041
     Dates: start: 20220223, end: 20220223
  2. ATEZOLIZUMAB [Suspect]
     Active Substance: ATEZOLIZUMAB
     Dosage: TIME OF INFUSION 14:35-15:35
     Route: 041
     Dates: start: 20220316, end: 20220316
  3. EFINEPTAKIN ALFA [Suspect]
     Active Substance: EFINEPTAKIN ALFA
     Indication: Skin cancer
     Dosage: START TIME OF FIRST INJECTION 17:45
     Route: 030
     Dates: start: 20220223
  4. COLCRYS [Concomitant]
     Active Substance: COLCHICINE
     Indication: Gout
     Route: 048
     Dates: start: 202102
  5. ZYLOPRIM [Concomitant]
     Active Substance: ALLOPURINOL
     Indication: Gout
     Dates: start: 202102
  6. BENTYL [Concomitant]
     Active Substance: DICYCLOMINE HYDROCHLORIDE
     Indication: Tumour pain
     Route: 048
     Dates: start: 202112
  7. OXYCODONE [Concomitant]
     Active Substance: OXYCODONE
     Indication: Tumour pain
     Route: 048
     Dates: start: 202110
  8. OXYCODONE [Concomitant]
     Active Substance: OXYCODONE
     Indication: Pain
     Route: 062
     Dates: start: 201502
  9. OXYCODONE [Concomitant]
     Active Substance: OXYCODONE
     Route: 048
     Dates: start: 20211215, end: 20220319
  10. OXYCODONE [Concomitant]
     Active Substance: OXYCODONE
     Route: 048
     Dates: start: 20220406
  11. BACITRACIN;POLYMYXIN B [Concomitant]
     Dosage: 500-10,000 UNIT
     Route: 061
     Dates: start: 20220401, end: 20220406
  12. LIDOCAINE [Concomitant]
     Active Substance: LIDOCAINE
     Indication: Prophylaxis
     Dosage: 10MG/ML ONCE
     Route: 042
     Dates: start: 20220402, end: 20220402
  13. LIDOCAINE [Concomitant]
     Active Substance: LIDOCAINE
     Dosage: 10MG/ML ONCE
     Route: 042
     Dates: start: 20220406, end: 20220406
  14. PIPERACILLIN AND TAZOBACTAM [Concomitant]
     Active Substance: PIPERACILLIN SODIUM\TAZOBACTAM SODIUM
     Indication: Infection prophylaxis
     Dates: start: 20220403, end: 20220405
  15. PIPERACILLIN AND TAZOBACTAM [Concomitant]
     Active Substance: PIPERACILLIN SODIUM\TAZOBACTAM SODIUM
     Route: 042
     Dates: start: 20220403, end: 20220404
  16. CEFEPIME [Concomitant]
     Active Substance: CEFEPIME HYDROCHLORIDE
     Indication: Abdominal infection
     Route: 042
     Dates: start: 20220403
  17. RAMELTEON [Concomitant]
     Active Substance: RAMELTEON
     Indication: Prophylaxis
     Route: 048
     Dates: start: 20220403, end: 20220406
  18. CIPROFLOXACIN [Concomitant]
     Active Substance: CIPROFLOXACIN
     Indication: Infection prophylaxis
     Route: 048
     Dates: start: 20220404
  19. CIPROFLOXACIN [Concomitant]
     Active Substance: CIPROFLOXACIN
     Route: 042
     Dates: start: 20220323, end: 20220323
  20. PANTOPRAZOLE [Concomitant]
     Active Substance: PANTOPRAZOLE
     Indication: Nausea
     Dosage: 40 MG QD ORAL (FROM 05-APR-2022 TO 06-APR-2022)
  21. PANTOPRAZOLE [Concomitant]
     Active Substance: PANTOPRAZOLE
     Indication: Vomiting
     Route: 042
     Dates: start: 20220401, end: 20220401
  22. METRONIDAZOLE [Concomitant]
     Active Substance: METRONIDAZOLE
     Indication: Abdominal infection
     Route: 048
     Dates: start: 20220405
  23. FUROSEMIDE [Concomitant]
     Active Substance: FUROSEMIDE
     Indication: Oedema
     Route: 048
     Dates: start: 20220406, end: 20220409
  24. FAMOTIDINE [Concomitant]
     Active Substance: FAMOTIDINE
     Route: 048
     Dates: start: 20220406
  25. TESTOSTERONE [Concomitant]
     Active Substance: TESTOSTERONE
     Indication: Blood testosterone decreased
     Route: 062
     Dates: start: 201502
  26. TESTOSTERONE [Concomitant]
     Active Substance: TESTOSTERONE
  27. TRAMADOL [Concomitant]
     Active Substance: TRAMADOL
     Indication: Tumour pain
     Route: 048
     Dates: start: 20220119
  28. SODIUM CHLORIDE [Concomitant]
     Active Substance: SODIUM CHLORIDE
     Indication: Nausea
     Route: 040
     Dates: start: 20220401, end: 20220401
  29. ENOXAPARIN [Concomitant]
     Active Substance: ENOXAPARIN
     Route: 058
     Dates: start: 20220403, end: 20220405
  30. ACETAMINOPHEN [Concomitant]
     Active Substance: ACETAMINOPHEN
     Route: 048
     Dates: start: 20220316, end: 20220316
  31. FENTANYL [Concomitant]
     Active Substance: FENTANYL
     Route: 042
     Dates: start: 20220323, end: 20220323
  32. IRON-DEXTRAN COMPLEX [Concomitant]
     Indication: Anaemia
     Route: 042
     Dates: start: 20220317, end: 20220317
  33. IRON-DEXTRAN COMPLEX [Concomitant]
     Route: 042
     Dates: start: 20220317, end: 20220317
  34. MEROPENEM [Concomitant]
     Active Substance: MEROPENEM
     Route: 042
     Dates: start: 20220401, end: 20220403
  35. MEROPENEM [Concomitant]
     Active Substance: MEROPENEM
     Route: 042
     Dates: start: 20220401, end: 20220401
  36. MIDAZOLAM [Concomitant]
     Active Substance: MIDAZOLAM
     Route: 042
     Dates: start: 20220323, end: 20220323
  37. VANCOMYCIN [Concomitant]
     Active Substance: VANCOMYCIN
     Route: 042
     Dates: start: 20220401, end: 20220401
  38. VANCOMYCIN [Concomitant]
     Active Substance: VANCOMYCIN
     Route: 042
     Dates: start: 20220402, end: 20220403
  39. HUMAN RED BLOOD CELL [Concomitant]
     Active Substance: HUMAN RED BLOOD CELL
     Indication: Anaemia
     Dates: start: 20220218, end: 20220218
  40. HUMAN RED BLOOD CELL [Concomitant]
     Active Substance: HUMAN RED BLOOD CELL
     Dates: start: 20220302, end: 20220302

REACTIONS (4)
  - Anaemia [Recovered/Resolved]
  - Small intestinal obstruction [Recovered/Resolved]
  - Sepsis [Recovered/Resolved]
  - Rash maculo-papular [Recovered/Resolved]

NARRATIVE: CASE EVENT DATE: 20220227
